FAERS Safety Report 5504289-7 (Version None)
Quarter: 2007Q4

REPORT INFORMATION
  Report Type: 
  Country: None (occurrence: None)
  Receive Date: 20071101
  Receipt Date: 20071018
  Transmission Date: 20080405
  Serious: Yes (Hospitalization)
  Sender: FDA-Public Use
  Company Number: GB-RANBAXY-2007RR-10862

PATIENT

DRUGS (6)
  1. CIPROFLOXACIN 500 MG FILM-COATED TABLETS [Suspect]
     Dosage: 500 MG, BID
     Dates: end: 20070921
  2. TYGACIL [Suspect]
     Indication: OSTEOMYELITIS
     Dosage: 50 MG, BID
     Route: 042
     Dates: start: 20070910
  3. CASPOFUNGIN ACETATE [Concomitant]
  4. LORATADINE 10MG TABLETS [Concomitant]
  5. PARACETAMOL CAPSULES 500MG [Concomitant]
  6. RANITIDINE 150 MG TABLETS [Concomitant]

REACTIONS (1)
  - MOUTH ULCERATION [None]
